FAERS Safety Report 5631469-2 (Version None)
Quarter: 2008Q1

REPORT INFORMATION
  Report Type: 
  Country: None (occurrence: None)
  Receive Date: 20080219
  Receipt Date: 20080211
  Transmission Date: 20080703
  Serious: Yes (Other)
  Sender: FDA-Public Use
  Company Number: GB-ALLERGAN-0801773US

PATIENT
  Sex: Female

DRUGS (1)
  1. BOTULINUM TOXIN TYPE A - GENERAL [Suspect]
     Indication: ANAL FISSURE
     Dosage: UNK, SINGLE

REACTIONS (1)
  - FAECAL INCONTINENCE [None]
